FAERS Safety Report 23309243 (Version 1)
Quarter: 2023Q4

REPORT INFORMATION
  Report Type: Spontaneous
  Country: GB (occurrence: GB)
  Receive Date: 20231218
  Receipt Date: 20231218
  Transmission Date: 20240110
  Serious: Yes (Other)
  Sender: FDA-Public Use
  Company Number: None

PATIENT
  Age: 73 Year
  Sex: Female
  Weight: 54 kg

DRUGS (13)
  1. DONEPEZIL [Suspect]
     Active Substance: DONEPEZIL
     Indication: Product used for unknown indication
     Dosage: 10 MILLIGRAM, QD
     Route: 065
     Dates: start: 20230224
  2. CHLORAMPHENICOL [Concomitant]
     Active Substance: CHLORAMPHENICOL
     Dosage: 1 DROP (IN THE AFFECTED EYE(S) AT ONSET OF)
     Route: 065
     Dates: start: 20221102
  3. CLOTRIMAZOLE [Concomitant]
     Active Substance: CLOTRIMAZOLE
     Dosage: APPLY 2-3 TIMES/DAY
     Route: 061
     Dates: start: 20221102
  4. DOXYCYCLINE [Concomitant]
     Active Substance: DOXYCYCLINE
     Dosage: TWO NOW THEN ONE DAILY
     Route: 065
     Dates: start: 20230926, end: 20231003
  5. FOLIC ACID [Concomitant]
     Active Substance: FOLIC ACID
     Dosage: 1 DOSAGE FORM, QD
     Route: 065
     Dates: start: 20231121
  6. POTASSIUM BICARBONATE\SODIUM ALGINATE [Concomitant]
     Active Substance: POTASSIUM BICARBONATE\SODIUM ALGINATE
     Dosage: 10 -20 MLS AFTER MEALS AND BEFORE BED TIME
     Route: 065
     Dates: start: 20221102
  7. POTASSIUM BICARBONATE [Concomitant]
     Active Substance: POTASSIUM BICARBONATE
     Dosage: UNK
     Route: 065
  8. HYDROCORTISONE [Concomitant]
     Active Substance: HYDROCORTISONE
     Dosage: ON RASHES
     Route: 061
     Dates: start: 20221102
  9. KEPPRA [Concomitant]
     Active Substance: LEVETIRACETAM
     Dosage: 10 MILLILITER, BID
     Route: 065
     Dates: start: 20221124
  10. LEVOTHYROXINE [Concomitant]
     Active Substance: LEVOTHYROXINE
     Dosage: 1 DOSAGE FORM, QD (MORNING)
     Route: 065
     Dates: start: 20230817
  11. POLYETHYLENE GLYCOLS [Concomitant]
     Active Substance: POLYETHYLENE GLYCOLS
     Dosage: 1 DOSAGE FORM, QD (AS NECESSARY)
     Route: 065
     Dates: start: 20221102
  12. MIDAZOLAM [Concomitant]
     Active Substance: MIDAZOLAM
     Dosage: AS DIRECTED (RESCUE MEDICATION FOR EPIL...
     Route: 065
     Dates: start: 20231129
  13. ZEROBASE [Concomitant]
     Dosage: AS SOAP IN BATHING AND THEN AS MOISTURISE...
     Route: 061
     Dates: start: 20221102

REACTIONS (1)
  - Joint swelling [Recovered/Resolved]
